FAERS Safety Report 5381753-5 (Version None)
Quarter: 2007Q3

REPORT INFORMATION
  Report Type: 
  Country: None (occurrence: None)
  Receive Date: 20070709
  Receipt Date: 20070628
  Transmission Date: 20080115
  Serious: Yes (Hospitalization, Disabling)
  Sender: FDA-Public Use
  Company Number: FR-AMGEN-UK168197

PATIENT
  Age: 66 Year
  Sex: Male
  Weight: 102 kg

DRUGS (17)
  1. ARANESP [Suspect]
     Indication: RENAL FAILURE CHRONIC
     Route: 042
     Dates: start: 20051129
  2. ASPEGIC 325 [Concomitant]
     Route: 065
     Dates: end: 20060222
  3. CALCIPARINE [Concomitant]
     Route: 065
  4. PYOSTACINE [Concomitant]
     Route: 048
  5. VANCOMYCIN HCL [Concomitant]
     Route: 065
  6. BUFLOMEDIL [Concomitant]
     Route: 065
  7. REPAGLINIDE [Concomitant]
     Route: 065
  8. URAPIDIL [Concomitant]
     Route: 065
  9. IRBESARTAN [Concomitant]
     Route: 065
  10. AMLODIPINE [Concomitant]
     Route: 065
  11. LASIX [Concomitant]
     Route: 065
  12. PERMIXON [Concomitant]
     Route: 065
  13. KAYEXALATE [Concomitant]
     Route: 065
  14. OGAST [Concomitant]
     Route: 065
  15. DI-ANTALVIC [Concomitant]
     Route: 065
  16. CALCIUM CARBONATE [Concomitant]
     Route: 065
  17. ROCALTROL [Concomitant]
     Route: 065

REACTIONS (3)
  - ARTERITIS [None]
  - PERIPHERAL ISCHAEMIA [None]
  - STAPHYLOCOCCAL INFECTION [None]
